FAERS Safety Report 15820122 (Version 2)
Quarter: 2019Q1

REPORT INFORMATION
  Report Type: Spontaneous
  Country: US (occurrence: US)
  Receive Date: 20190114
  Receipt Date: 20190114
  Transmission Date: 20190417
  Serious: No
  Sender: FDA-Public Use
  Company Number: US-B.I. PHARMACEUTICALS,INC./RIDGEFIELD-2019-BI-000954

PATIENT
  Age: 68 Year
  Sex: Male

DRUGS (1)
  1. SPIRIVA [Suspect]
     Active Substance: TIOTROPIUM BROMIDE MONOHYDRATE
     Indication: CHRONIC OBSTRUCTIVE PULMONARY DISEASE
     Dosage: 2 PUFFS DAILY;  FORM STRENGTH: 18 MCG; FORMULATION: CAPSUL?ACTION(S) TAKEN : DOSE NOT CHANGED
     Route: 055
     Dates: start: 2016

REACTIONS (2)
  - Urticaria [Unknown]
  - Skin sensitisation [Unknown]

NARRATIVE: CASE EVENT DATE: 2017
